FAERS Safety Report 21391513 (Version 1)
Quarter: 2022Q3

REPORT INFORMATION
  Report Type: Spontaneous
  Country: US (occurrence: US)
  Receive Date: 20220929
  Receipt Date: 20220929
  Transmission Date: 20221027
  Serious: Yes (Other)
  Sender: FDA-Public Use
  Company Number: US-PFIZER INC-202201174038

PATIENT
  Age: 80 Year
  Sex: Male

DRUGS (3)
  1. BINIMETINIB [Suspect]
     Active Substance: BINIMETINIB
     Indication: Colorectal cancer metastatic
     Dosage: UNK (3 CYCLES)
     Dates: start: 201903
  2. ENCORAFENIB [Concomitant]
     Active Substance: ENCORAFENIB
     Indication: Colorectal cancer metastatic
     Dosage: UNK (11 CYCLES)
     Dates: start: 201903
  3. CETUXIMAB [Concomitant]
     Active Substance: CETUXIMAB
     Indication: Colorectal cancer metastatic
     Dosage: UNK (11 CYCLES)
     Dates: start: 201903

REACTIONS (1)
  - Pancreatitis relapsing [Unknown]
